FAERS Safety Report 11948556 (Version 1)
Quarter: 2016Q1

REPORT INFORMATION
  Report Type: Spontaneous
  Country: US (occurrence: None)
  Receive Date: 20160121
  Receipt Date: 20160121
  Transmission Date: 20160526
  Serious: Yes (Other)
  Sender: FDA-Public Use
  Company Number: None

PATIENT
  Age: 76 Year
  Sex: Male

DRUGS (22)
  1. RAMIPRIL. [Concomitant]
     Active Substance: RAMIPRIL
  2. NORVIR [Concomitant]
     Active Substance: RITONAVIR
  3. FENTANYL. [Concomitant]
     Active Substance: FENTANYL
  4. LYRICA [Concomitant]
     Active Substance: PREGABALIN
  5. PREDNISONE. [Concomitant]
     Active Substance: PREDNISONE
  6. LAMIVUDINE. [Concomitant]
     Active Substance: LAMIVUDINE
  7. BICALUTAMIDE. [Concomitant]
     Active Substance: BICALUTAMIDE
  8. TIVICAY [Concomitant]
     Active Substance: DOLUTEGRAVIR SODIUM
  9. NEXIUM [Concomitant]
     Active Substance: ESOMEPRAZOLE MAGNESIUM
  10. PROMETHAZINE [Concomitant]
     Active Substance: PROMETHAZINE\PROMETHAZINE HYDROCHLORIDE
  11. ZYTIGA [Suspect]
     Active Substance: ABIRATERONE ACETATE
     Route: 048
     Dates: start: 20151116, end: 20160114
  12. TAMSULOSIN [Concomitant]
     Active Substance: TAMSULOSIN
  13. LACTULOSE. [Concomitant]
     Active Substance: LACTULOSE
  14. PREZISTA [Concomitant]
     Active Substance: DARUNAVIR ETHANOLATE
  15. VOLTAREN [Concomitant]
     Active Substance: DICLOFENAC SODIUM
  16. GENERLAC [Concomitant]
     Active Substance: LACTULOSE
  17. GLIPIZIDE ER [Concomitant]
     Active Substance: GLIPIZIDE
  18. IBUPROFEN. [Concomitant]
     Active Substance: IBUPROFEN
  19. ADVAIR HFA [Concomitant]
     Active Substance: FLUTICASONE PROPIONATE\SALMETEROL XINAFOATE
  20. SELZENTRY [Concomitant]
     Active Substance: MARAVIROC
  21. PROAIR HFA [Concomitant]
     Active Substance: ALBUTEROL SULFATE
  22. TRAZODONE [Concomitant]
     Active Substance: TRAZODONE HYDROCHLORIDE

REACTIONS (3)
  - Fatigue [None]
  - Blood glucose increased [None]
  - Asthenia [None]

NARRATIVE: CASE EVENT DATE: 20160117
